FAERS Safety Report 25135474 (Version 9)
Quarter: 2025Q4

REPORT INFORMATION
  Report Type: Spontaneous
  Country: US (occurrence: US)
  Receive Date: 20250328
  Receipt Date: 20251230
  Transmission Date: 20260117
  Serious: No
  Sender: PHARMING GROUP
  Company Number: US-PHARMING-PHAUS2025000429

PATIENT

DRUGS (10)
  1. RUCONEST [Suspect]
     Active Substance: CONESTAT ALFA
     Indication: Hereditary angioedema
     Dosage: 2400 IU, AS NEEDED
     Route: 042
     Dates: start: 202110
  2. RUCONEST [Suspect]
     Active Substance: CONESTAT ALFA
     Indication: Hereditary angioedema
     Dosage: 2400 IU, AS NEEDED
     Route: 042
     Dates: start: 202110
  3. RUCONEST [Suspect]
     Active Substance: CONESTAT ALFA
     Indication: Hereditary angioedema
     Dosage: 2400 IU, PRN
     Route: 042
     Dates: start: 202110
  4. RUCONEST [Suspect]
     Active Substance: CONESTAT ALFA
     Dosage: 2100 IU
     Route: 042
     Dates: start: 20211116
  5. RUCONEST [Suspect]
     Active Substance: CONESTAT ALFA
     Dosage: 2400 IU, AS NEEDED
     Route: 042
     Dates: start: 202110
  6. RUCONEST [Suspect]
     Active Substance: CONESTAT ALFA
     Dosage: 2400 IU, PRN
     Route: 042
     Dates: start: 20211005
  7. RUCONEST [Suspect]
     Active Substance: CONESTAT ALFA
     Dosage: 2400 IU, PRN
     Route: 042
     Dates: start: 202110
  8. RUCONEST [Suspect]
     Active Substance: CONESTAT ALFA
     Dosage: 2400 IU, PRN
     Route: 042
     Dates: start: 202110
  9. RUCONEST [Suspect]
     Active Substance: CONESTAT ALFA
     Dosage: 2400 IU, PRN
     Route: 042
     Dates: start: 20211005
  10. HAEGARDA [Concomitant]
     Active Substance: HUMAN C1-ESTERASE INHIBITOR
     Indication: Hereditary angioedema
     Dosage: 3000 IU
     Route: 058
     Dates: start: 20250304

REACTIONS (3)
  - Maternal exposure during pregnancy [Unknown]
  - Underdose [Unknown]
  - Maternal exposure during breast feeding [Unknown]
